FAERS Safety Report 4345383-6 (Version None)
Quarter: 2004Q2

REPORT INFORMATION
  Report Type: 
  Country: None (occurrence: None)
  Receive Date: 20040421
  Receipt Date: 20040408
  Transmission Date: 20050107
  Serious: Yes (Hospitalization, Other)
  Sender: FDA-Public Use
  Company Number: 2004022838

PATIENT
  Age: 72 Year
  Sex: Female

DRUGS (3)
  1. SORTIS (ATORVASTATIN) [Suspect]
     Indication: HYPERCHOLESTEROLAEMIA
     Dosage: 20 MG DAILY ORAL
     Route: 048
     Dates: start: 20040217, end: 20040323
  2. LITHIUM CARBONATE [Suspect]
     Indication: DEPRESSION
     Dosage: ORAL
     Route: 048
     Dates: start: 19980101
  3. MULTIVITAMINS (ASCORBIC ACID, ERGOCALCIFEROL, FOLIC ACID, NICOTINAMIDE [Concomitant]

REACTIONS (11)
  - ASPIRATION BONE MARROW ABNORMAL [None]
  - CALCIUM IONISED INCREASED [None]
  - CATARACT [None]
  - CHOLELITHIASIS [None]
  - DRUG INTERACTION [None]
  - HAEMATOMA [None]
  - HEPATIC STEATOSIS [None]
  - HYPERCALCAEMIA [None]
  - IDIOPATHIC THROMBOCYTOPENIC PURPURA [None]
  - PETECHIAE [None]
  - THROMBOCYTOPENIA [None]
